FAERS Safety Report 25596302 (Version 1)
Quarter: 2025Q3

REPORT INFORMATION
  Report Type: Spontaneous
  Country: US (occurrence: US)
  Receive Date: 20250723
  Receipt Date: 20250723
  Transmission Date: 20251020
  Serious: No
  Sender: SANOFI AVENTIS
  Company Number: US-SANOFI-02596796

PATIENT
  Age: 71 Year
  Sex: Female

DRUGS (1)
  1. TOUJEO MAX [Suspect]
     Active Substance: INSULIN GLARGINE
     Indication: Diabetes mellitus
     Dosage: 160 UNITS IN THE MORNING AND 110 IN THE EVENING THAT VARIES ON HER SUGAR LEVEL.

REACTIONS (2)
  - Off label use [Unknown]
  - Product dispensing error [Unknown]
